FAERS Safety Report 4400938-5 (Version None)
Quarter: 2004Q3

REPORT INFORMATION
  Report Type: 
  Country: None (occurrence: None)
  Receive Date: 20040907
  Receipt Date: 20030819
  Transmission Date: 20050211
  Serious: No
  Sender: FDA-Public Use
  Company Number: US-BRISTOL-MYERS SQUIBB COMPANY-12359626

PATIENT
  Age: 68 Year
  Sex: Male
  Weight: 79 kg

DRUGS (6)
  1. COUMADIN [Suspect]
     Indication: ATRIAL FIBRILLATION
     Route: 048
  2. PROPAFENONE HYDROCHLORIDE [Concomitant]
  3. LANOXIN [Concomitant]
  4. SODIUM CHLORIDE [Concomitant]
     Route: 045
  5. VIAGRA [Concomitant]
  6. CLARINEX [Concomitant]

REACTIONS (2)
  - NIGHTMARE [None]
  - SLEEP TALKING [None]
